FAERS Safety Report 14283977 (Version 1)
Quarter: 2017Q4

REPORT INFORMATION
  Report Type: Spontaneous
  Country: GB (occurrence: GB)
  Receive Date: 20171214
  Receipt Date: 20171214
  Transmission Date: 20180321
  Serious: Yes (Death)
  Sender: FDA-Public Use
  Company Number: GB-BAYER-2017-151682

PATIENT
  Age: 76 Year
  Sex: Male
  Weight: 76 kg

DRUGS (4)
  1. CIPROFLOXACIN. [Suspect]
     Active Substance: CIPROFLOXACIN
     Indication: BIOPSY PROSTATE
     Dosage: 1 DF, QD
     Route: 030
     Dates: start: 20160919
  2. METROGYL [Concomitant]
     Active Substance: METRONIDAZOLE
     Indication: BIOPSY PROSTATE
     Dosage: 1 DF, UNK
     Route: 042
     Dates: start: 20160919, end: 20160919
  3. GENTAMICIN. [Concomitant]
     Active Substance: GENTAMICIN
     Indication: BIOPSY PROSTATE
     Dosage: 1 DF, UNK
     Route: 042
     Dates: start: 20160919, end: 20160919
  4. CIPROFLOXACIN. [Suspect]
     Active Substance: CIPROFLOXACIN
     Indication: BIOPSY PROSTATE
     Dosage: 500 MG, BID
     Route: 048
     Dates: start: 20160919, end: 20160924

REACTIONS (5)
  - Completed suicide [Fatal]
  - Paranoia [Fatal]
  - Dysgraphia [Fatal]
  - Agitation [Fatal]
  - Confusional state [Fatal]

NARRATIVE: CASE EVENT DATE: 201609
